FAERS Safety Report 15344122 (Version 1)
Quarter: 2018Q3

REPORT INFORMATION
  Report Type: Spontaneous
  Country: HR (occurrence: HR)
  Receive Date: 20180903
  Receipt Date: 20180903
  Transmission Date: 20181010
  Serious: Yes (Other)
  Sender: FDA-Public Use
  Company Number: HR-ASTRAZENECA-2018SF09046

PATIENT
  Age: 43 Year
  Sex: Male

DRUGS (2)
  1. MIRZATEN [Suspect]
     Active Substance: MIRTAZAPINE
     Dosage: WHOLE BOX OF MIRTAZEN
     Route: 048
     Dates: start: 20180615, end: 20180615
  2. SEROQUEL [Suspect]
     Active Substance: QUETIAPINE FUMARATE
     Dosage: 1 BLISTER OF SEROQUEL 200 MG
     Route: 048
     Dates: start: 20180615, end: 20180615

REACTIONS (3)
  - Intentional overdose [Unknown]
  - Somnolence [Unknown]
  - Suicide attempt [Unknown]

NARRATIVE: CASE EVENT DATE: 20180615
